FAERS Safety Report 11250529 (Version 1)
Quarter: 2015Q3

REPORT INFORMATION
  Report Type: Spontaneous
  Country: US (occurrence: US)
  Receive Date: 20150708
  Receipt Date: 20150708
  Transmission Date: 20151125
  Serious: No
  Sender: FDA-Public Use
  Company Number: US-VIIV HEALTHCARE LIMITED-US2014GSK044943

PATIENT
  Age: 73 Year
  Sex: Male

DRUGS (5)
  1. EPIVIR HBV [Suspect]
     Active Substance: LAMIVUDINE
     Indication: LIVER TRANSPLANT
  2. PAROXETINE [Concomitant]
     Active Substance: PAROXETINE\PAROXETINE HYDROCHLORIDE
  3. FINASTERIDE. [Concomitant]
     Active Substance: FINASTERIDE
  4. EPIVIR HBV [Suspect]
     Active Substance: LAMIVUDINE
     Indication: HEPATITIS
     Dosage: 100 MG, QD
     Dates: start: 1994
  5. DOXYCYCLINE. [Concomitant]
     Active Substance: DOXYCYCLINE

REACTIONS (1)
  - Cataract [Not Recovered/Not Resolved]

NARRATIVE: CASE EVENT DATE: 201408
